FAERS Safety Report 5425360-4 (Version None)
Quarter: 2007Q3

REPORT INFORMATION
  Report Type: 
  Country: None (occurrence: None)
  Receive Date: 20070824
  Receipt Date: 20070817
  Transmission Date: 20080115
  Serious: Yes (Other)
  Sender: FDA-Public Use
  Company Number: CH-ABBOTT-07P-151-0378458-00

PATIENT
  Age: 60 Year
  Sex: Female

DRUGS (7)
  1. VALPROIC ACID [Suspect]
     Indication: CONVULSION
  2. VALPROIC ACID [Suspect]
     Indication: AFFECTIVE DISORDER
     Dosage: NOT REPORTED
  3. QUETIAPINE FUMARATE [Interacting]
     Indication: SCHIZOAFFECTIVE DISORDER
     Route: 048
  4. QUETIAPINE FUMARATE [Interacting]
     Route: 048
  5. QUETIAPINE FUMARATE [Interacting]
     Dosage: NOT REPORTED
  6. QUETIAPINE FUMARATE [Interacting]
     Route: 048
  7. OLANZAPINE [Concomitant]
     Indication: DRUG USE FOR UNKNOWN INDICATION
     Dosage: NOT REPORTED

REACTIONS (2)
  - DRUG INTERACTION [None]
  - TORTICOLLIS [None]
